FAERS Safety Report 4614578-6 (Version None)
Quarter: 2005Q2

REPORT INFORMATION
  Report Type: 
  Country: None (occurrence: None)
  Receive Date: 20050307
  Receipt Date: 20041109
  Transmission Date: 20051028
  Serious: Yes (Other)
  Sender: FDA-Public Use
  Company Number: USA041183622

PATIENT
  Sex: Male

DRUGS (4)
  1. ALIMTA [Suspect]
     Indication: LUNG NEOPLASM MALIGNANT
     Dates: start: 20041011
  2. GEMZAR [Suspect]
     Indication: LUNG NEOPLASM MALIGNANT
  3. NAVELBINE [Concomitant]
  4. TAXOTERE [Concomitant]

REACTIONS (3)
  - DRUG INEFFECTIVE [None]
  - METASTASIS [None]
  - NEOPLASM PROGRESSION [None]
